FAERS Safety Report 5637296-4 (Version None)
Quarter: 2008Q1

REPORT INFORMATION
  Report Type: 
  Country: None (occurrence: None)
  Receive Date: 20080225
  Receipt Date: 20080219
  Transmission Date: 20080703
  Serious: Yes (Hospitalization, Other)
  Sender: FDA-Public Use
  Company Number: US-PFIZER INC-2007042991

PATIENT
  Sex: Female
  Weight: 99.8 kg

DRUGS (1)
  1. CELEBREX [Suspect]
     Indication: ARTHRITIS

REACTIONS (3)
  - DEPRESSION [None]
  - HALLUCINATION [None]
  - MYOCARDIAL INFARCTION [None]
